FAERS Safety Report 19468879 (Version 1)
Quarter: 2021Q2

REPORT INFORMATION
  Report Type: Spontaneous
  Country: IT (occurrence: IT)
  Receive Date: 20210628
  Receipt Date: 20210628
  Transmission Date: 20210717
  Serious: Yes (Other)
  Sender: FDA-Public Use
  Company Number: IT-MYLANLABS-2021M1037599

PATIENT
  Age: 65 Year
  Sex: Female

DRUGS (3)
  1. CAPECITABINE. [Suspect]
     Active Substance: CAPECITABINE
     Indication: HEPATOCELLULAR CARCINOMA
     Dosage: 1000 MILLIGRAM, QD
     Route: 048
  2. CAPECITABINE. [Suspect]
     Active Substance: CAPECITABINE
     Indication: HEPATIC CIRRHOSIS
  3. CAPECITABINE. [Suspect]
     Active Substance: CAPECITABINE
     Indication: CHILD-PUGH-TURCOTTE SCORE INCREASED

REACTIONS (3)
  - Off label use [Unknown]
  - Hyperbilirubinaemia [Recovering/Resolving]
  - Thrombocytopenia [Recovering/Resolving]
